FAERS Safety Report 18810710 (Version 2)
Quarter: 2025Q2

REPORT INFORMATION
  Report Type: Spontaneous
  Country: US (occurrence: US)
  Receive Date: 20210130
  Receipt Date: 20250626
  Transmission Date: 20250717
  Serious: Yes (Life-Threatening, Hospitalization, Other)
  Sender: AUROBINDO
  Company Number: US-MLMSERVICE-20210120-2685206-1

PATIENT
  Age: 87 Year
  Sex: Female

DRUGS (4)
  1. VANCOMYCIN [Suspect]
     Active Substance: VANCOMYCIN
     Indication: Antibiotic therapy
     Route: 065
     Dates: start: 2020, end: 2020
  2. VITAMIN C [Concomitant]
     Active Substance: ASCORBIC ACID
     Indication: Chemical burn of skin
     Route: 065
     Dates: start: 2020
  3. Colomycin [Concomitant]
     Indication: Antibiotic therapy
     Route: 065
     Dates: start: 2020
  4. MEROPENEM [Concomitant]
     Active Substance: MEROPENEM
     Indication: Antibiotic therapy
     Route: 065
     Dates: start: 2020

REACTIONS (1)
  - Acute kidney injury [Unknown]

NARRATIVE: CASE EVENT DATE: 20200101
